FAERS Safety Report 7313638-9 (Version None)
Quarter: 2011Q1

REPORT INFORMATION
  Report Type: 
  Country: None (occurrence: None)
  Receive Date: 20110215
  Receipt Date: 20110215
  Transmission Date: 20110831
  Serious: No
  Sender: FDA-Public Use
  Company Number: None

PATIENT
  Age: 46 Year
  Sex: Female
  Weight: 72.5755 kg

DRUGS (1)
  1. INDIGO CARMINE 8MG/ML AKORN [Suspect]
     Indication: DIAGNOSTIC PROCEDURE
     Dosage: 40MG ONCE IV
     Route: 042
     Dates: start: 20110126, end: 20110126

REACTIONS (1)
  - INFUSION SITE DISCOLOURATION [None]
